FAERS Safety Report 12850583 (Version 2)
Quarter: 2016Q4

REPORT INFORMATION
  Report Type: Report from Study
  Country: US (occurrence: US)
  Receive Date: 20161014
  Receipt Date: 20161019
  Transmission Date: 20170207
  Serious: Yes (Hospitalization, Other)
  Sender: FDA-Public Use
  Company Number: US-GILEAD-2016-0237758

PATIENT
  Age: 66 Year
  Sex: Female
  Weight: 114.29 kg

DRUGS (20)
  1. APIXABAN [Concomitant]
     Active Substance: APIXABAN
  2. BUMETANIDE. [Concomitant]
     Active Substance: BUMETANIDE
  3. VITAMIN B12 [Concomitant]
     Active Substance: CYANOCOBALAMIN
  4. MAGNESIUM HYDROXIDE. [Concomitant]
     Active Substance: MAGNESIUM HYDROXIDE
  5. MUPIROCIN. [Concomitant]
     Active Substance: MUPIROCIN
  6. NEBIVOLOL. [Concomitant]
     Active Substance: NEBIVOLOL
  7. ZAROXOLYN [Concomitant]
     Active Substance: METOLAZONE
  8. ADCIRCA [Concomitant]
     Active Substance: TADALAFIL
     Dosage: 20 MG, UNK
     Route: 065
  9. FERROUS SULFATE. [Concomitant]
     Active Substance: FERROUS SULFATE
  10. SODIUM BICARBONATE. [Concomitant]
     Active Substance: SODIUM BICARBONATE
  11. SUCRALFATE. [Concomitant]
     Active Substance: SUCRALFATE
  12. PERCOCET                           /00446701/ [Concomitant]
     Active Substance: ACETAMINOPHEN\OXYCODONE HYDROCHLORIDE\OXYCODONE TEREPHTHALATE
  13. SACCHAROMYCES BOULARDII LYOPHYLIZED [Concomitant]
  14. AMBRISENTAN [Suspect]
     Active Substance: AMBRISENTAN
     Indication: PULMONARY ARTERIAL HYPERTENSION
     Dosage: 5 MG, UNK
     Route: 065
     Dates: start: 20160901
  15. DILTIAZEM. [Concomitant]
     Active Substance: DILTIAZEM
  16. POLYETHYLENE GLYCOL [Concomitant]
     Active Substance: POLYETHYLENE GLYCOLS
  17. ALDACTONE [Concomitant]
     Active Substance: SPIRONOLACTONE
  18. METOLAZONE. [Concomitant]
     Active Substance: METOLAZONE
  19. PANTOPRAZOLE [Concomitant]
     Active Substance: PANTOPRAZOLE SODIUM
  20. AMBRISENTAN [Suspect]
     Active Substance: AMBRISENTAN
     Dosage: 10 MG, UNK
     Route: 065

REACTIONS (6)
  - Cardiac failure [Unknown]
  - Generalised oedema [Recovered/Resolved]
  - Oedema peripheral [Recovered/Resolved]
  - Dyspnoea [Recovered/Resolved]
  - Weight increased [Recovered/Resolved]
  - Waist circumference increased [Recovered/Resolved]
